FAERS Safety Report 25384581 (Version 1)
Quarter: 2025Q2

REPORT INFORMATION
  Report Type: Spontaneous
  Country: NL (occurrence: NL)
  Receive Date: 20250602
  Receipt Date: 20250602
  Transmission Date: 20250716
  Serious: Yes (Death)
  Sender: ACCORD
  Company Number: None

PATIENT
  Age: 83 Year
  Sex: Female
  Weight: 62 kg

DRUGS (14)
  1. ROSUVASTATIN CALCIUM [Interacting]
     Active Substance: ROSUVASTATIN CALCIUM
     Indication: Hypercholesterolaemia
     Dosage: 1 X PER DAY 1 PIECE
     Dates: start: 20250217, end: 20250314
  2. TICAGRELOR [Interacting]
     Active Substance: TICAGRELOR
     Indication: Chest pain
     Dosage: 2 X PER DAY 1 PIECE
     Dates: start: 20250207
  3. ISOSORBIDE DINITRATE [Concomitant]
     Active Substance: ISOSORBIDE DINITRATE
  4. PERINDOPRIL [Concomitant]
     Active Substance: PERINDOPRIL
  5. METOPROLOL [Concomitant]
     Active Substance: METOPROLOL
  6. DIAZEPAM [Concomitant]
     Active Substance: DIAZEPAM
  7. ISOSORBIDE MONONITRATE [Concomitant]
     Active Substance: ISOSORBIDE MONONITRATE
  8. ASPIRIN [Concomitant]
     Active Substance: ASPIRIN
  9. PANTOPRAZOLE SODIUM [Concomitant]
     Active Substance: PANTOPRAZOLE SODIUM
  10. HYDROCHLOROTHIAZIDE [Concomitant]
     Active Substance: HYDROCHLOROTHIAZIDE
  11. TIOTROPIUM [Concomitant]
     Active Substance: TIOTROPIUM
  12. OXAZEPAM [Concomitant]
     Active Substance: OXAZEPAM
  13. DOMPERIDONE [Concomitant]
     Active Substance: DOMPERIDONE
  14. BECLOMETHASONE DIPROPIONATE [Concomitant]
     Active Substance: BECLOMETHASONE DIPROPIONATE

REACTIONS (2)
  - Rhabdomyolysis [Fatal]
  - Drug interaction [Fatal]
